FAERS Safety Report 13724720 (Version 3)
Quarter: 2019Q2

REPORT INFORMATION
  Report Type: Spontaneous
  Country: US (occurrence: US)
  Receive Date: 20170706
  Receipt Date: 20190417
  Transmission Date: 20190711
  Serious: Yes (Other)
  Sender: FDA-Public Use
  Company Number: US-BIOGEN-2017BI00426250

PATIENT
  Age: 10 Month
  Sex: Male

DRUGS (1)
  1. SPINRAZA [Suspect]
     Active Substance: NUSINERSEN
     Indication: SPINAL MUSCULAR ATROPHY
     Route: 037
     Dates: start: 20170125

REACTIONS (2)
  - Pyrexia [Recovered/Resolved]
  - Craniosynostosis [Not Recovered/Not Resolved]

NARRATIVE: CASE EVENT DATE: 20170627
